FAERS Safety Report 5903181-3 (Version None)
Quarter: 2008Q3

REPORT INFORMATION
  Report Type: 
  Country: None (occurrence: None)
  Receive Date: 20080926
  Receipt Date: 20080912
  Transmission Date: 20090109
  Serious: Yes (Hospitalization, Disabling)
  Sender: FDA-Public Use
  Company Number: DSA_31370_2008

PATIENT
  Age: 53 Year
  Sex: Female

DRUGS (6)
  1. ENALAPRIL MALEATE [Suspect]
     Indication: HYPERTENSION
     Dosage: (5 MG QD ORAL)
     Route: 048
     Dates: start: 19920101, end: 20050720
  2. CORTICOSTEROIDS(CORTOCOSTEROIDS) [Suspect]
     Indication: COUGH
     Dosage: (10 MG QD ORAL)
     Route: 048
     Dates: start: 19950101, end: 19980101
  3. TRIAMTERENE AND HYDROCHLOROTHIAZIDE [Concomitant]
  4. OMEPRAZOLE [Concomitant]
  5. NEXIUM [Concomitant]
  6. TRANDOLAPRIL [Concomitant]

REACTIONS (31)
  - ABDOMINAL PAIN [None]
  - ANGINA PECTORIS [None]
  - ASTHENIA [None]
  - BRONCHITIS [None]
  - CIRCULATORY COLLAPSE [None]
  - COUGH [None]
  - DIAPHRAGMATIC RUPTURE [None]
  - DYSPNOEA [None]
  - ECZEMA [None]
  - ERYSIPELAS [None]
  - FEMORAL NERVE INJURY [None]
  - FIBROMYALGIA [None]
  - GASTRITIS [None]
  - GASTROINTESTINAL DISORDER [None]
  - HAEMORRHOIDS [None]
  - HEADACHE [None]
  - HIATUS HERNIA [None]
  - INCREASED BRONCHIAL SECRETION [None]
  - LIVER FUNCTION TEST ABNORMAL [None]
  - OEDEMA PERIPHERAL [None]
  - PARAESTHESIA [None]
  - PERIPHERAL NERVE LESION [None]
  - PLEURISY [None]
  - PNEUMONIA [None]
  - PROCEDURAL PAIN [None]
  - REFLUX OESOPHAGITIS [None]
  - THROMBOSIS [None]
  - TINNITUS [None]
  - VASCULAR PSEUDOANEURYSM [None]
  - VISUAL IMPAIRMENT [None]
  - VOMITING [None]
